FAERS Safety Report 25230577 (Version 1)
Quarter: 2025Q2

REPORT INFORMATION
  Report Type: Spontaneous
  Country: FR (occurrence: FR)
  Receive Date: 20250423
  Receipt Date: 20250423
  Transmission Date: 20250717
  Serious: Yes (Hospitalization)
  Sender: MYLAN
  Company Number: None

PATIENT
  Age: 33 Year
  Sex: Male
  Weight: 75 kg

DRUGS (12)
  1. SERTRALINE [Suspect]
     Active Substance: SERTRALINE HYDROCHLORIDE
     Indication: Depression
     Dosage: 50 MILLIGRAM, QD
     Dates: start: 20250306, end: 20250328
  2. SERTRALINE [Suspect]
     Active Substance: SERTRALINE HYDROCHLORIDE
     Dosage: 50 MILLIGRAM, QD
     Route: 048
     Dates: start: 20250306, end: 20250328
  3. SERTRALINE [Suspect]
     Active Substance: SERTRALINE HYDROCHLORIDE
     Dosage: 50 MILLIGRAM, QD
     Route: 048
     Dates: start: 20250306, end: 20250328
  4. SERTRALINE [Suspect]
     Active Substance: SERTRALINE HYDROCHLORIDE
     Dosage: 50 MILLIGRAM, QD
     Dates: start: 20250306, end: 20250328
  5. CYCLOPHOSPHAMIDE [Suspect]
     Active Substance: CYCLOPHOSPHAMIDE
     Indication: Sarcoidosis
     Dates: start: 20250306, end: 20250306
  6. CYCLOPHOSPHAMIDE [Suspect]
     Active Substance: CYCLOPHOSPHAMIDE
     Route: 042
     Dates: start: 20250306, end: 20250306
  7. CYCLOPHOSPHAMIDE [Suspect]
     Active Substance: CYCLOPHOSPHAMIDE
     Route: 042
     Dates: start: 20250306, end: 20250306
  8. CYCLOPHOSPHAMIDE [Suspect]
     Active Substance: CYCLOPHOSPHAMIDE
     Dates: start: 20250306, end: 20250306
  9. ONDANSETRON [Suspect]
     Active Substance: ONDANSETRON
     Indication: Prophylaxis of nausea and vomiting
     Dates: start: 20250306, end: 20250328
  10. ONDANSETRON [Suspect]
     Active Substance: ONDANSETRON
     Route: 048
     Dates: start: 20250306, end: 20250328
  11. ONDANSETRON [Suspect]
     Active Substance: ONDANSETRON
     Route: 048
     Dates: start: 20250306, end: 20250328
  12. ONDANSETRON [Suspect]
     Active Substance: ONDANSETRON
     Dates: start: 20250306, end: 20250328

REACTIONS (3)
  - Hepatic cytolysis [Recovering/Resolving]
  - Hyperbilirubinaemia [Recovering/Resolving]
  - Pancytopenia [Recovering/Resolving]

NARRATIVE: CASE EVENT DATE: 20250329
